FAERS Safety Report 11055149 (Version 1)
Quarter: 2015Q2

REPORT INFORMATION
  Report Type: Spontaneous
  Country: US (occurrence: US)
  Receive Date: 20150422
  Receipt Date: 20150422
  Transmission Date: 20150821
  Serious: Yes (Hospitalization, Other)
  Sender: FDA-Public Use
  Company Number: US-SA-2014SA164586

PATIENT
  Age: 87 Year
  Sex: Male

DRUGS (2)
  1. LOVENOX [Suspect]
     Active Substance: ENOXAPARIN SODIUM
     Indication: INTERNATIONAL NORMALISED RATIO DECREASED
     Route: 065
     Dates: start: 2014
  2. WARFARIN [Concomitant]
     Active Substance: WARFARIN

REACTIONS (3)
  - Injection site cellulitis [Unknown]
  - Contusion [Recovering/Resolving]
  - Intra-abdominal haematoma [Unknown]
